FAERS Safety Report 8787077 (Version 3)
Quarter: 2013Q2

REPORT INFORMATION
  Report Type: Spontaneous
  Country: US (occurrence: US)
  Receive Date: 20120914
  Receipt Date: 20130506
  Transmission Date: 20140414
  Serious: Yes (Hospitalization)
  Sender: FDA-Public Use
  Company Number: US-ABBOTT-12P-163-0932941-00

PATIENT
  Sex: 0

DRUGS (2)
  1. HUMIRA 40 MG/ 0.8 ML PRE-FILLED SYRINGE [Suspect]
     Indication: PRODUCT USED FOR UNKNOWN INDICATION
     Dates: start: 20120502
  2. METHOTREXATE [Concomitant]
     Indication: PRODUCT USED FOR UNKNOWN INDICATION

REACTIONS (26)
  - Blister [Unknown]
  - Staphylococcal infection [Unknown]
  - Burning sensation [Unknown]
  - Pustular psoriasis [Unknown]
  - Psoriatic arthropathy [Unknown]
  - Neuralgia [Unknown]
  - Hypoaesthesia [Unknown]
  - Erythema [Unknown]
  - Gait disturbance [Unknown]
  - Nausea [Unknown]
  - Diarrhoea [Unknown]
  - Disorientation [Unknown]
  - Rash pustular [Not Recovered/Not Resolved]
  - Pruritus [Not Recovered/Not Resolved]
  - Psoriasis [Not Recovered/Not Resolved]
  - Wound [Not Recovered/Not Resolved]
  - Staphylococcal infection [Unknown]
  - Adverse drug reaction [Unknown]
  - Behcet^s syndrome [Unknown]
  - Activities of daily living impaired [Unknown]
  - Depression [Unknown]
  - Burning sensation [Unknown]
  - Feeling abnormal [Unknown]
  - Fear [Unknown]
  - Immune system disorder [Unknown]
  - Adverse drug reaction [Unknown]
